FAERS Safety Report 4668711-0 (Version None)
Quarter: 2005Q2

REPORT INFORMATION
  Report Type: 
  Country: None (occurrence: None)
  Receive Date: 20050519
  Receipt Date: 20050510
  Transmission Date: 20051028
  Serious: Yes (Death, Other)
  Sender: FDA-Public Use
  Company Number: 2005066574

PATIENT
  Sex: Female

DRUGS (1)
  1. CELEBREX [Suspect]
     Indication: SHOULDER PAIN

REACTIONS (2)
  - BONE NEOPLASM MALIGNANT [None]
  - HAEMORRHAGE [None]
